FAERS Safety Report 9016529 (Version 2)
Quarter: 2013Q2

REPORT INFORMATION
  Report Type: Report from Study
  Country: US (occurrence: US)
  Receive Date: 20130116
  Receipt Date: 20130506
  Transmission Date: 20140414
  Serious: Yes (Hospitalization, Other)
  Sender: FDA-Public Use
  Company Number: US-009507513-1203USA01732

PATIENT
  Age: 70 Year
  Sex: Male

DRUGS (9)
  1. PRINIVIL [Suspect]
     Route: 048
  2. SAXAGLIPTIN [Suspect]
     Indication: TYPE 2 DIABETES MELLITUS
     Dosage: UNK
     Dates: start: 20101202
  3. LASIX (FUROSEMIDE) [Suspect]
  4. INSULIN ASPART [Suspect]
     Indication: TYPE 2 DIABETES MELLITUS
     Dosage: 65 IU, UNK
  5. INSULIN DETEMIR [Suspect]
     Indication: TYPE 2 DIABETES MELLITUS
     Dosage: 75 IU, UNK
  6. ANGIOTENSIN AMIDE [Concomitant]
     Dates: start: 20101201
  7. ASPIRIN [Concomitant]
     Dates: start: 20101201
  8. NIACIN [Concomitant]
  9. EZETIMIBE [Concomitant]

REACTIONS (2)
  - Systemic inflammatory response syndrome [Recovered/Resolved]
  - Cellulitis [Recovered/Resolved]
